FAERS Safety Report 4467945-8 (Version None)
Quarter: 2004Q4

REPORT INFORMATION
  Report Type: 
  Country: None (occurrence: None)
  Receive Date: 20041004
  Receipt Date: 20041004
  Transmission Date: 20050328
  Serious: Yes (Life-Threatening)
  Sender: FDA-Public Use
  Company Number: None

PATIENT
  Age: 53 Year
  Sex: Female
  Weight: 90.2658 kg

DRUGS (4)
  1. VIOXX [Suspect]
     Indication: FIBROMYALGIA
     Dosage: 25 MG
     Dates: start: 19980101
  2. VIOXX [Suspect]
     Indication: PAIN
     Dosage: 25 MG
     Dates: start: 19980101
  3. CELEBREX [Suspect]
     Indication: FIBROMYALGIA
     Dates: start: 19980201, end: 19980301
  4. CELEBREX [Suspect]
     Indication: PAIN
     Dates: start: 19980201, end: 19980301

REACTIONS (5)
  - BLOOD URINE [None]
  - CYST [None]
  - HYPERTENSION [None]
  - LIVER DISORDER [None]
  - OEDEMA PERIPHERAL [None]
